FAERS Safety Report 4595703-2 (Version None)
Quarter: 2005Q1

REPORT INFORMATION
  Report Type: 
  Country: None (occurrence: None)
  Receive Date: 20050224
  Receipt Date: 20050211
  Transmission Date: 20050727
  Serious: No
  Sender: FDA-Public Use
  Company Number: 2005026763

PATIENT
  Age: 12 Year
  Sex: 0

DRUGS (1)
  1. ZELDOX (CAPSULES) (ZIPRASIDONE) [Suspect]
     Indication: ILL-DEFINED DISORDER
     Dosage: 120 MG (2 IN 1 D) ORAL
     Route: 048

REACTIONS (3)
  - EXTRAPYRAMIDAL DISORDER [None]
  - MUSCLE RIGIDITY [None]
  - PYREXIA [None]
